FAERS Safety Report 8457703-1 (Version None)
Quarter: 2012Q2

REPORT INFORMATION
  Report Type: 
  Country: None (occurrence: None)
  Receive Date: 20120618
  Receipt Date: 20120618
  Transmission Date: 20120825
  Serious: No
  Sender: FDA-Public Use
  Company Number: None

PATIENT
  Age: 75 Year
  Sex: Male
  Weight: 95.4368 kg

DRUGS (5)
  1. DECADRON [Concomitant]
  2. ONDANSETRON (ZOFRAN) [Concomitant]
  3. TAXOTERE [Suspect]
     Indication: PROSTATE CANCER METASTATIC
     Dosage: 120MG ONCE IV
     Route: 042
     Dates: start: 20120305
  4. TAXOTERE [Suspect]
     Indication: PROSTATE CANCER METASTATIC
     Dosage: 120MG ONCE IV
     Route: 042
     Dates: start: 20120206
  5. COMPAZINE [Concomitant]

REACTIONS (3)
  - CHEST DISCOMFORT [None]
  - CHEST PAIN [None]
  - FLUSHING [None]
